FAERS Safety Report 7207970-7 (Version None)
Quarter: 2011Q1

REPORT INFORMATION
  Report Type: 
  Country: None (occurrence: None)
  Receive Date: 20110104
  Receipt Date: 20101224
  Transmission Date: 20110831
  Serious: Yes (Hospitalization, Other)
  Sender: FDA-Public Use
  Company Number: JP-JNJFOC-20101208377

PATIENT
  Age: 3 Decade
  Sex: Female

DRUGS (5)
  1. RISPERDAL [Suspect]
     Indication: ILL-DEFINED DISORDER
     Route: 048
  2. LITHIUM CARBONATE [Suspect]
     Indication: ILL-DEFINED DISORDER
     Route: 048
  3. ETHANOL [Suspect]
     Indication: ILL-DEFINED DISORDER
     Route: 065
  4. VALPROATE SODIUM [Suspect]
     Indication: ILL-DEFINED DISORDER
     Route: 048
  5. CARBAMAZEPINE [Suspect]
     Indication: ILL-DEFINED DISORDER
     Route: 048

REACTIONS (5)
  - COMA [None]
  - PNEUMONIA [None]
  - SOMNOLENCE [None]
  - ATELECTASIS [None]
  - MULTIPLE DRUG OVERDOSE INTENTIONAL [None]
